FAERS Safety Report 13388857 (Version 1)
Quarter: 2017Q1

REPORT INFORMATION
  Report Type: Spontaneous
  Country: RU (occurrence: RU)
  Receive Date: 20170330
  Receipt Date: 20170330
  Transmission Date: 20170429
  Serious: Yes (Hospitalization)
  Sender: FDA-Public Use
  Company Number: RU-GILEAD-2017-0264757

PATIENT
  Age: 31 Year
  Sex: Male
  Weight: 52 kg

DRUGS (8)
  1. REMANTADIN [Concomitant]
     Dosage: 4 UNK, UNK
  2. GLYCINE. [Concomitant]
     Active Substance: GLYCINE
     Dosage: 3 UNK, UNK
  3. AMIODARON [Concomitant]
     Active Substance: AMIODARONE
     Dosage: 100 MG, UNK
  4. TORASEMIDE [Concomitant]
     Active Substance: TORSEMIDE
     Dosage: 5 MG, UNK
  5. PERINDOPRIL [Concomitant]
     Active Substance: PERINDOPRIL
     Dosage: 1.25 MG, UNK
  6. AMBRISENTAN [Suspect]
     Active Substance: AMBRISENTAN
     Indication: PRODUCT USED FOR UNKNOWN INDICATION
     Dosage: 5 MG, UNK
     Route: 065
     Dates: start: 20170315
  7. BISOPROLOL [Concomitant]
     Active Substance: BISOPROLOL
     Dosage: 1.25 MG, UNK
  8. VEROSPIRONUM [Concomitant]
     Dosage: 50 MG, UNK

REACTIONS (5)
  - Dyspnoea [Not Recovered/Not Resolved]
  - Palpitations [Unknown]
  - Headache [Unknown]
  - Hot flush [Unknown]
  - Nasal congestion [Unknown]

NARRATIVE: CASE EVENT DATE: 20170315
